FAERS Safety Report 6369017-4 (Version None)
Quarter: 2009Q3

REPORT INFORMATION
  Report Type: 
  Country: None (occurrence: None)
  Receive Date: 20090918
  Receipt Date: 20090918
  Transmission Date: 20100115
  Serious: Yes (Other)
  Sender: FDA-Public Use
  Company Number: None

PATIENT
  Age: 37 Year
  Sex: Female
  Weight: 74.8435 kg

DRUGS (2)
  1. ETODOLAC [Suspect]
     Indication: SWELLING
     Dosage: 500 MG 1 TWICE A DAY
  2. GABAPENTIN [Suspect]
     Indication: NEURALGIA
     Dosage: 300 MG 1 TWICE A DAY

REACTIONS (2)
  - LOSS OF CONSCIOUSNESS [None]
  - PAIN IN EXTREMITY [None]
